FAERS Safety Report 19661410 (Version 1)
Quarter: 2021Q3

REPORT INFORMATION
  Report Type: Spontaneous
  Country: DE (occurrence: DE)
  Receive Date: 20210805
  Receipt Date: 20210805
  Transmission Date: 20211014
  Serious: Yes (Hospitalization)
  Sender: FDA-Public Use
  Company Number: DE-MYLANLABS-2021M1047602

PATIENT
  Age: 2 Year
  Sex: Female
  Weight: 11 kg

DRUGS (4)
  1. MONTELUKAST [Concomitant]
     Active Substance: MONTELUKAST SODIUM
     Indication: BRONCHITIS
     Dosage: UNK
     Route: 048
     Dates: start: 20200131
  2. SALBUTAMOL [Suspect]
     Active Substance: ALBUTEROL
     Indication: BRONCHITIS
     Dosage: UNK
     Route: 055
     Dates: start: 20200131
  3. ATROVENT [Concomitant]
     Active Substance: IPRATROPIUM BROMIDE
     Indication: BRONCHITIS
     Dosage: UNK
     Route: 055
     Dates: start: 20200131
  4. VENTOLAIR [Concomitant]
     Active Substance: BECLOMETHASONE DIPROPIONATE
     Indication: BRONCHITIS
     Dosage: 3 DOSAGE FORM, QD,3 SEPARATED DOSES
     Route: 055
     Dates: start: 20200131

REACTIONS (3)
  - Accidental exposure to product [Recovered/Resolved]
  - Mydriasis [Recovered/Resolved]
  - Product administration error [Recovered/Resolved]

NARRATIVE: CASE EVENT DATE: 20200203
